FAERS Safety Report 14604868 (Version 1)
Quarter: 2018Q1

REPORT INFORMATION
  Report Type: Spontaneous
  Country: US (occurrence: US)
  Receive Date: 20180306
  Receipt Date: 20180306
  Transmission Date: 20180509
  Serious: No
  Sender: FDA-Public Use
  Company Number: None

PATIENT
  Age: 71 Year
  Sex: Male
  Weight: 91.58 kg

DRUGS (1)
  1. ALBUTEROL. [Suspect]
     Active Substance: ALBUTEROL
     Dosage: 2 PUFF(S) OTHER INHALE
     Route: 055
     Dates: start: 20170915, end: 20180221

REACTIONS (3)
  - Product substitution issue [None]
  - Dyspnoea [None]
  - Product quality issue [None]

NARRATIVE: CASE EVENT DATE: 20180221
